FAERS Safety Report 16707810 (Version 2)
Quarter: 2019Q3

REPORT INFORMATION
  Report Type: Spontaneous
  Country: US (occurrence: US)
  Receive Date: 20190815
  Receipt Date: 20190925
  Transmission Date: 20191004
  Serious: Yes (Other)
  Sender: FDA-Public Use
  Company Number: US-PFIZER INC-2019321914

PATIENT
  Age: 33 Year
  Sex: Female

DRUGS (4)
  1. CISPLATIN. [Suspect]
     Active Substance: CISPLATIN
     Indication: NASOPHARYNGEAL CANCER
     Dosage: 540 MG/M2, CYCLIC (EVERY 7-14 DAYS)
  2. CETUXIMAB. [Suspect]
     Active Substance: CETUXIMAB
     Dosage: 250 MG/M2, CYCLIC (SUBSEQUENT DOSES EVERY 7-14 DAYS)
  3. DOCETAXEL. [Suspect]
     Active Substance: DOCETAXEL
     Indication: NASOPHARYNGEAL CANCER
     Dosage: 30 MG/M2, CYCLIC (EVERY 7-14 DAYS)
  4. CETUXIMAB. [Suspect]
     Active Substance: CETUXIMAB
     Indication: NASOPHARYNGEAL CANCER
     Dosage: 400 MG/M2, (INITIAL DOSE)

REACTIONS (2)
  - Dermatitis [Recovering/Resolving]
  - Lacrimation increased [Recovered/Resolved]
